FAERS Safety Report 7878600-6 (Version None)
Quarter: 2011Q4

REPORT INFORMATION
  Report Type: 
  Country: None (occurrence: None)
  Receive Date: 20111101
  Receipt Date: 20111101
  Transmission Date: 20120403
  Serious: Yes (Hospitalization)
  Sender: FDA-Public Use
  Company Number: None

PATIENT
  Age: 33 Year
  Sex: Female
  Weight: 70.306 kg

DRUGS (6)
  1. NEURONTIN [Suspect]
     Indication: FIBROMYALGIA
     Dosage: UP TO 3 CAPSULES
     Route: 048
     Dates: start: 20111024, end: 20111030
  2. NEURONTIN [Suspect]
     Indication: ARTHRITIS
     Dosage: UP TO 3 CAPSULES
     Route: 048
     Dates: start: 20111024, end: 20111030
  3. NEURONTIN [Suspect]
     Indication: PAIN
     Dosage: UP TO 3 CAPSULES
     Route: 048
     Dates: start: 20111024, end: 20111030
  4. LODINE [Concomitant]
     Indication: ARTHRITIS
     Dosage: 1 TABLET
     Route: 048
     Dates: start: 20111024, end: 20111030
  5. LODINE [Concomitant]
     Indication: PAIN
     Dosage: 1 TABLET
     Route: 048
     Dates: start: 20111024, end: 20111030
  6. LODINE [Concomitant]
     Indication: FIBROMYALGIA
     Dosage: 1 TABLET
     Route: 048
     Dates: start: 20111024, end: 20111030

REACTIONS (6)
  - PHARYNGEAL OEDEMA [None]
  - DROOLING [None]
  - APHASIA [None]
  - SPEECH DISORDER [None]
  - SWOLLEN TONGUE [None]
  - APHONIA [None]
